FAERS Safety Report 4353266-0 (Version None)
Quarter: 2004Q2

REPORT INFORMATION
  Report Type: 
  Country: None (occurrence: None)
  Receive Date: 20040503
  Receipt Date: 20040503
  Transmission Date: 20050107
  Serious: Yes (Other)
  Sender: FDA-Public Use
  Company Number: None

PATIENT
  Age: 48 Year
  Sex: Male
  Weight: 90.7194 kg

DRUGS (5)
  1. NEXIUM [Suspect]
     Indication: GASTRIC ULCER
     Dosage: 20 MG QD
     Dates: start: 20031003
  2. PREVACID [Suspect]
  3. PROTONIX [Suspect]
  4. ACIPHEX [Suspect]
  5. PERCOCET [Suspect]
     Indication: PAIN
     Dosage: 10/650 MG QID
     Dates: start: 20031003

REACTIONS (3)
  - DYSPEPSIA [None]
  - GASTROINTESTINAL DISORDER [None]
  - NAUSEA [None]
